FAERS Safety Report 7177698-0 (Version None)
Quarter: 2010Q4

REPORT INFORMATION
  Report Type: 
  Country: None (occurrence: None)
  Receive Date: 20101220
  Receipt Date: 20100817
  Transmission Date: 20110411
  Serious: Yes (Life-Threatening, Hospitalization, Other)
  Sender: FDA-Public Use
  Company Number: GB-CELGENEUS-167-21880-10080466

PATIENT
  Sex: Female
  Weight: 65 kg

DRUGS (11)
  1. REVLIMID [Suspect]
     Indication: MULTIPLE MYELOMA
     Route: 048
     Dates: start: 20100630, end: 20100715
  2. BENDROFLUMETHIAZIDE [Interacting]
     Indication: HYPERTENSION
     Route: 048
  3. TRAMADOL HCL [Interacting]
     Indication: PAIN
     Route: 048
  4. FRAGMIN [Concomitant]
     Route: 058
  5. ACYCLOVIR [Concomitant]
     Indication: ANTIVIRAL PROPHYLAXIS
     Route: 048
     Dates: start: 20100630, end: 20100715
  6. DEXAMETHASONE [Concomitant]
     Indication: MULTIPLE MYELOMA
     Route: 048
     Dates: start: 20100630, end: 20100703
  7. ALLOPURINOL [Concomitant]
     Indication: PROPHYLAXIS
     Route: 048
     Dates: start: 20100630, end: 20100715
  8. ALLOPURINOL [Concomitant]
     Indication: GOUT
  9. COTRIM [Concomitant]
     Indication: PROPHYLAXIS
     Route: 048
  10. COTRIM [Concomitant]
  11. RANITIDINE [Concomitant]
     Route: 048

REACTIONS (2)
  - DRUG INTERACTION [None]
  - INAPPROPRIATE ANTIDIURETIC HORMONE SECRETION [None]
